FAERS Safety Report 6647744-9 (Version None)
Quarter: 2010Q1

REPORT INFORMATION
  Report Type: 
  Country: None (occurrence: None)
  Receive Date: 20100317
  Receipt Date: 20100304
  Transmission Date: 20100710
  Serious: Yes (Hospitalization, Other)
  Sender: FDA-Public Use
  Company Number: 2010AP000351

PATIENT
  Age: 98 Year
  Sex: Female

DRUGS (10)
  1. OMEPRAZOLE [Suspect]
     Indication: GASTROOESOPHAGEAL REFLUX DISEASE
     Dosage: 10 MG;UNKNOWN;QD
  2. ASPIRIN [Concomitant]
  3. NICORANDIL (NICORANDIL) [Concomitant]
  4. ISOSORBIDE MONONITRATE [Concomitant]
  5. SIMVASTATIN [Concomitant]
  6. BISOPROLOL FUMARATE [Concomitant]
  7. LEVOTHYROXINE (LEVOTHRYROXINE) [Concomitant]
  8. GLIPIZIDE [Concomitant]
  9. CALCIUM CARBONATE [Concomitant]
  10. COLECALCIFEROL (COLECALCIFEROL) [Concomitant]

REACTIONS (7)
  - ESCHERICHIA URINARY TRACT INFECTION [None]
  - FALL [None]
  - FEMUR FRACTURE [None]
  - GAIT DISTURBANCE [None]
  - GLYCOSYLATED HAEMOGLOBIN INCREASED [None]
  - HIP FRACTURE [None]
  - HYPONATRAEMIA [None]
